FAERS Safety Report 8237512-9 (Version None)
Quarter: 2012Q1

REPORT INFORMATION
  Report Type: 
  Country: None (occurrence: None)
  Receive Date: 20120323
  Receipt Date: 20120314
  Transmission Date: 20120608
  Serious: Yes (Hospitalization)
  Sender: FDA-Public Use
  Company Number: 2012HGS-003310

PATIENT
  Age: 57 Year
  Sex: Female
  Weight: 72.5755 kg

DRUGS (22)
  1. PLAQUENIL [Concomitant]
  2. PREDNISONE TAB [Concomitant]
  3. FLONASE [Concomitant]
  4. METHOCARBAMOL [Concomitant]
  5. AMBIEN [Concomitant]
  6. MIRTAZAPINE [Concomitant]
  7. SINGULAIR [Concomitant]
  8. TRIAMCINOLONE ACETONIDE [Concomitant]
  9. LYMPHOSTAT-B (BELIMUMAB) [Suspect]
     Indication: SYSTEMIC LUPUS ERYTHEMATOSUS
     Dosage: 10 MG/KG, 1 IN 28 D, INTRAVENOUS DRIP
     Route: 041
     Dates: start: 20060203
  10. COMBIVENT [Concomitant]
  11. VESICARE [Concomitant]
  12. PRILOSEC (OMEPRAZOLE MAGNESIUM) [Concomitant]
  13. FLOVENT [Concomitant]
  14. RETIN-A [Concomitant]
  15. DUONEB [Concomitant]
  16. LISINOPRIL-HYDROCHLOROTHIAZIDE (ZESTORETIC) [Concomitant]
  17. CHANTIX [Concomitant]
  18. ESTRADIOL [Concomitant]
  19. TYLENOL #2 (CODEINE PHOSPHATE, PARACETAMOL) [Concomitant]
  20. THERA-TEARS (CARMELLOSE SODIUM) [Concomitant]
  21. GENTEAL (HYPROMELLOSE) [Concomitant]
  22. CYANOCOBALAMIN [Concomitant]

REACTIONS (19)
  - AORTIC VALVE INCOMPETENCE [None]
  - ADRENAL INSUFFICIENCY [None]
  - RESPIRATORY FAILURE [None]
  - SEPTIC SHOCK [None]
  - TENDERNESS [None]
  - BLOOD GLUCOSE DECREASED [None]
  - SOMNOLENCE [None]
  - PNEUMONIA [None]
  - VOMITING [None]
  - ATELECTASIS [None]
  - FLUID OVERLOAD [None]
  - NAUSEA [None]
  - HEART RATE DECREASED [None]
  - CARDIAC FAILURE CONGESTIVE [None]
  - CELLULITIS STAPHYLOCOCCAL [None]
  - PYELONEPHRITIS ACUTE [None]
  - PAIN [None]
  - HYPOTENSION [None]
  - PNEUMONIA ASPIRATION [None]
